FAERS Safety Report 4959685-3 (Version None)
Quarter: 2006Q1

REPORT INFORMATION
  Report Type: 
  Country: None (occurrence: None)
  Receive Date: 20060328
  Receipt Date: 20060316
  Transmission Date: 20060701
  Serious: Yes (Other)
  Sender: FDA-Public Use
  Company Number: 2006037614

PATIENT
  Age: 59 Year
  Sex: Female
  Weight: 63.5036 kg

DRUGS (5)
  1. ZOLOFT [Suspect]
     Indication: DEPRESSION
     Dosage: 100 MG (100 MG, 1 IN 1 D)
     Dates: start: 20040101
  2. ZESTORETIC (HYDROCHLORTHIAZIDE, LISINOPRIL) [Concomitant]
  3. ZOCOR [Concomitant]
  4. PLAVIX [Concomitant]
  5. ALL OTHER THERAPEUTIC PRODUCTS [Concomitant]

REACTIONS (1)
  - CEREBROVASCULAR ACCIDENT [None]
